FAERS Safety Report 6135984-7 (Version None)
Quarter: 2009Q1

REPORT INFORMATION
  Report Type: 
  Country: None (occurrence: None)
  Receive Date: 20090329
  Receipt Date: 20081118
  Transmission Date: 20090719
  Serious: No
  Sender: FDA-Public Use
  Company Number: US-BAUSCH-2008BL004854

PATIENT
  Age: 67 Year
  Sex: Male
  Weight: 131 kg

DRUGS (6)
  1. LOTEMAX [Suspect]
     Indication: POSTOPERATIVE CARE
     Route: 047
     Dates: start: 20081015, end: 20081114
  2. LOTEMAX [Suspect]
     Route: 047
     Dates: start: 20081015, end: 20081114
  3. LOTEMAX [Suspect]
     Route: 047
     Dates: start: 20081015, end: 20081114
  4. XIBROM [Suspect]
     Indication: POSTOPERATIVE CARE
     Route: 047
     Dates: start: 20081015, end: 20081114
  5. INSULIN [Concomitant]
     Indication: DIABETES MELLITUS
     Dates: start: 19830101
  6. GLUCOPHAGE [Concomitant]
     Indication: DIABETES MELLITUS
     Dates: start: 19830101

REACTIONS (6)
  - ABNORMAL SENSATION IN EYE [None]
  - EYE INFLAMMATION [None]
  - EYE IRRITATION [None]
  - EYE SWELLING [None]
  - MADAROSIS [None]
  - VISUAL ACUITY REDUCED [None]
